FAERS Safety Report 8531411-0 (Version None)
Quarter: 2012Q3

REPORT INFORMATION
  Report Type: 
  Country: None (occurrence: None)
  Receive Date: 20120723
  Receipt Date: 20120713
  Transmission Date: 20120928
  Serious: Yes (Hospitalization)
  Sender: FDA-Public Use
  Company Number: BR-ASTRAZENECA-2012SE49381

PATIENT
  Age: 59 Year
  Sex: Female
  Weight: 80 kg

DRUGS (2)
  1. ATACAND HCT [Suspect]
     Indication: HYPERTENSION
     Dosage: 8/12,5 MG, OD
     Route: 048
     Dates: start: 20100101, end: 20120301
  2. SEROQUEL [Suspect]
     Indication: INSOMNIA
     Dosage: 1 AND 1/2 TABLET
     Route: 048
     Dates: start: 20120301

REACTIONS (3)
  - INSOMNIA [None]
  - NEOPLASM MALIGNANT [None]
  - OFF LABEL USE [None]
